FAERS Safety Report 8090987-0 (Version None)
Quarter: 2012Q1

REPORT INFORMATION
  Report Type: 
  Country: None (occurrence: None)
  Receive Date: 20120128
  Receipt Date: 20110729
  Transmission Date: 20120608
  Serious: No
  Sender: FDA-Public Use
  Company Number: US-ABBOTT-11P-163-0842972-00

PATIENT
  Age: 60 Year
  Sex: Female

DRUGS (13)
  1. HUMIRA [Suspect]
     Indication: CROHN'S DISEASE
     Dosage: TEMPORARY INTERRUPTION
     Dates: start: 20110315, end: 20110715
  2. SERTRALINE HYDROCHLORIDE [Concomitant]
     Indication: DEPRESSION
     Dosage: 100 MG DAILY
  3. DILTIAZEM HCL [Concomitant]
     Indication: BLOOD PRESSURE
     Dosage: 240 MG DAILY
  4. BENAZEPRIL HYDROCHLORIDE [Concomitant]
     Indication: BLOOD PRESSURE
     Dosage: 40 MG DAILY
  5. CLONAZEPAM [Concomitant]
     Indication: DEPRESSION
  6. PRAVASTATIN [Concomitant]
     Indication: PRODUCT USED FOR UNKNOWN INDICATION
     Dosage: 40 MG DAILY
  7. METFORMIN HCL [Concomitant]
     Indication: DIABETES MELLITUS
  8. GLYBURIDE [Concomitant]
     Indication: DIABETES MELLITUS
  9. ASPIRIN [Concomitant]
     Indication: PRODUCT USED FOR UNKNOWN INDICATION
     Dosage: DAILY
  10. ADULT VITAMINS [Concomitant]
     Indication: PRODUCT USED FOR UNKNOWN INDICATION
  11. CLONAZEPAM [Concomitant]
     Indication: ANXIETY
  12. CLONIDINE [Concomitant]
     Indication: PRODUCT USED FOR UNKNOWN INDICATION
  13. LEVAQUIN [Concomitant]
     Indication: PRODUCT USED FOR UNKNOWN INDICATION
     Dosage: 500 MG DAILY

REACTIONS (1)
  - CYSTITIS [None]
